FAERS Safety Report 4735345-9 (Version None)
Quarter: 2005Q3

REPORT INFORMATION
  Report Type: 
  Country: None (occurrence: None)
  Receive Date: 20050805
  Receipt Date: 20050726
  Transmission Date: 20060218
  Serious: Yes (Other)
  Sender: FDA-Public Use
  Company Number: DE-ROCHE-411973

PATIENT
  Age: 73 Year
  Sex: Male
  Weight: 76 kg

DRUGS (5)
  1. PEG-INTERFERON A-2A (RO 25-8310) [Suspect]
     Route: 058
     Dates: start: 20030904, end: 20030911
  2. RIBAVIRIN [Suspect]
     Route: 048
  3. RAMIPRIL [Concomitant]
     Indication: HYPERTENSION
  4. DELIX 5 PLUS [Concomitant]
  5. ZOLOFT [Concomitant]
     Indication: DEPRESSION

REACTIONS (1)
  - ILEUS [None]
